FAERS Safety Report 12704888 (Version 6)
Quarter: 2016Q4

REPORT INFORMATION
  Report Type: Report from Study
  Country: US (occurrence: US)
  Receive Date: 20160831
  Receipt Date: 20161104
  Transmission Date: 20170207
  Serious: Yes (Other)
  Sender: FDA-Public Use
  Company Number: US-ALEXION-A201606359

PATIENT
  Sex: Female

DRUGS (2)
  1. STRENSIQ [Suspect]
     Active Substance: ASFOTASE ALFA
     Dosage: UNK
     Route: 058
  2. STRENSIQ [Suspect]
     Active Substance: ASFOTASE ALFA
     Indication: HYPOPHOSPHATASIA
     Dosage: UNK
     Route: 058

REACTIONS (12)
  - Myalgia [Recovering/Resolving]
  - Hypoaesthesia [Recovering/Resolving]
  - Muscle spasms [Unknown]
  - Injection site pain [Unknown]
  - Muscular weakness [Unknown]
  - Injection site erythema [Unknown]
  - Injection site inflammation [Unknown]
  - Injection site pruritus [Unknown]
  - Lipodystrophy acquired [Recovering/Resolving]
  - Injection site mass [Recovering/Resolving]
  - Lower limb fracture [Recovering/Resolving]
  - Paraesthesia [Recovering/Resolving]

NARRATIVE: CASE EVENT DATE: 20160824
